FAERS Safety Report 15322989 (Version 1)
Quarter: 2018Q3

REPORT INFORMATION
  Report Type: Spontaneous
  Country: GB (occurrence: GB)
  Receive Date: 20180827
  Receipt Date: 20180827
  Transmission Date: 20181010
  Serious: Yes (Hospitalization, Other)
  Sender: FDA-Public Use
  Company Number: GB-PFIZER INC-2018335491

PATIENT
  Age: 3 Year
  Sex: Male
  Weight: 18 kg

DRUGS (6)
  1. METHOTREXATE SODIUM. [Suspect]
     Active Substance: METHOTREXATE SODIUM
     Indication: ACUTE LEUKAEMIA
     Route: 048
  2. MERCAPTOPURINE ANHYDROUS [Concomitant]
  3. VINCRISTINE [Concomitant]
     Active Substance: VINCRISTINE
  4. ALLOPURINOL. [Concomitant]
     Active Substance: ALLOPURINOL
     Dosage: UNK
  5. DEXAMETHASONE. [Concomitant]
     Active Substance: DEXAMETHASONE
  6. METHOTREXATE SODIUM. [Suspect]
     Active Substance: METHOTREXATE SODIUM
     Indication: ACUTE LEUKAEMIA
     Dosage: UNK
     Route: 037
     Dates: start: 20140207, end: 20180719

REACTIONS (2)
  - Microangiopathy [Recovering/Resolving]
  - Seizure [Unknown]

NARRATIVE: CASE EVENT DATE: 20180202
